FAERS Safety Report 8557990-5 (Version None)
Quarter: 2012Q3

REPORT INFORMATION
  Report Type: 
  Country: None (occurrence: None)
  Receive Date: 20120801
  Receipt Date: 19971110
  Transmission Date: 20120928
  Serious: Yes (Life-Threatening, Hospitalization)
  Sender: FDA-Public Use
  Company Number: DE-009507513-97105570

PATIENT

DRUGS (5)
  1. ASPIRIN [Concomitant]
     Dosage: 100 MG, UNK
  2. INSULIN [Concomitant]
  3. LOSARTAN POTASSIUM [Suspect]
     Indication: HYPERTENSION
     Dosage: 100 MG, BID
     Route: 048
     Dates: start: 19970301, end: 19970801
  4. ISOSORBIDE DINITRATE [Concomitant]
     Dosage: 40 MG, UNK
  5. DIGITOXIN TAB [Concomitant]

REACTIONS (1)
  - HEPATITIS CHOLESTATIC [None]
